FAERS Safety Report 10442296 (Version 1)
Quarter: 2014Q3

REPORT INFORMATION
  Report Type: Spontaneous
  Country: US (occurrence: None)
  Receive Date: 20140905
  Receipt Date: 20140905
  Transmission Date: 20150326
  Serious: Yes (Death)
  Sender: FDA-Public Use
  Company Number: 2014AP004440

PATIENT
  Age: 47 Year
  Sex: Female

DRUGS (1)
  1. DILTIAZEM HYDROCHLORIDE. [Suspect]
     Active Substance: DILTIAZEM HYDROCHLORIDE
     Indication: OVERDOSE
     Route: 048

REACTIONS (6)
  - Exposure via ingestion [None]
  - Pulseless electrical activity [None]
  - Shock [None]
  - Acidosis [None]
  - Intentional overdose [None]
  - Respiratory failure [None]
